FAERS Safety Report 8600077-3 (Version None)
Quarter: 2012Q3

REPORT INFORMATION
  Report Type: 
  Country: None (occurrence: None)
  Receive Date: 20120816
  Receipt Date: 20120806
  Transmission Date: 20120928
  Serious: Yes (Other)
  Sender: FDA-Public Use
  Company Number: NL-BAXTER-2012BAX013823

PATIENT
  Sex: Female

DRUGS (25)
  1. CALMURID                           /00028601/ [Concomitant]
     Route: 003
     Dates: start: 20120308
  2. SEVELAMER CARBONATE [Concomitant]
     Route: 048
     Dates: start: 20110523
  3. ARANESP [Concomitant]
     Route: 042
     Dates: start: 20110404
  4. NUTRINEAL [Suspect]
     Indication: PERITONEAL DIALYSIS
     Route: 033
     Dates: start: 20120615
  5. SPIRIVA [Concomitant]
     Route: 065
     Dates: start: 20120308
  6. BACTROBAN [Concomitant]
     Route: 065
     Dates: start: 20110210
  7. LANTUS [Concomitant]
     Route: 058
     Dates: start: 20110210
  8. ATOVARSTATINE [Concomitant]
     Route: 048
     Dates: start: 20110131
  9. EXTRANEAL [Suspect]
     Indication: PERITONEAL DIALYSIS
     Route: 033
     Dates: start: 20090824
  10. ASPIRIN [Concomitant]
     Dosage: 0.5/30 MG
     Route: 003
     Dates: start: 20120207
  11. INSULIN ASPART [Concomitant]
     Route: 058
     Dates: start: 20120210
  12. BISOPROLOL FUMARATE [Concomitant]
     Route: 048
     Dates: start: 20120611
  13. VENTOLIN [Concomitant]
     Route: 065
     Dates: start: 20110210
  14. DIANEAL [Suspect]
     Route: 033
  15. LOSARTAN POTASSIUM [Concomitant]
     Route: 048
     Dates: start: 20120611
  16. LOPERAMIDE [Concomitant]
     Route: 048
     Dates: start: 20120308
  17. OMEPRAZOLE [Concomitant]
     Route: 048
     Dates: start: 20110210
  18. CHOLECALCIFEROL [Concomitant]
     Route: 048
     Dates: start: 20110210
  19. ALFACALCIDOL [Concomitant]
     Route: 048
     Dates: start: 20110210
  20. TEMAZEPAM [Concomitant]
     Route: 048
     Dates: start: 20110210
  21. ACENOCOUMAROL [Concomitant]
     Route: 048
     Dates: start: 20110210
  22. FLUTICASONE PROPIONATE/SALMETEROL [Concomitant]
     Dosage: 50/25 MICROGRAM
     Route: 065
     Dates: start: 20120308
  23. PANZYTRAT                          /00014701/ [Concomitant]
     Route: 048
     Dates: start: 20110210
  24. ISOSORBIDE DINITRATE [Concomitant]
     Route: 048
     Dates: start: 20110210
  25. HYDROXYCOBALAMINE [Concomitant]
     Route: 030
     Dates: start: 20110210

REACTIONS (4)
  - VOMITING [None]
  - NAUSEA [None]
  - ABDOMINAL PAIN [None]
  - BLOOD GLUCOSE INCREASED [None]
